FAERS Safety Report 15165305 (Version 4)
Quarter: 2020Q2

REPORT INFORMATION
  Report Type: Spontaneous
  Country: FR (occurrence: FR)
  Receive Date: 20180719
  Receipt Date: 20200504
  Transmission Date: 20200713
  Serious: Yes (Other)
  Sender: FDA-Public Use
  Company Number: FR-MYLANLABS-2018M1052966

PATIENT
  Sex: Male

DRUGS (17)
  1. SKENAN [Suspect]
     Active Substance: MORPHINE SULFATE
     Dosage: 60 MG, UNK
  2. TRAMADOL. [Suspect]
     Active Substance: TRAMADOL
     Indication: BACK PAIN
     Dosage: IN THE MORNING, IN MIDDAY, IN THE EVENING
  3. ACTISKENAN [Suspect]
     Active Substance: MORPHINE SULFATE
     Dosage: UNK
  4. PRAZEPAM [Suspect]
     Active Substance: PRAZEPAM
     Dosage: 30 MG, QD, 10 MG IN THE MORNING, 10 MG IN MIDDAY, 10 MG IN THE EVENING
  5. SKENAN [Suspect]
     Active Substance: MORPHINE SULFATE
     Dosage: IN THE MORNING AND IN THE EVENING
  6. SKENAN [Suspect]
     Active Substance: MORPHINE SULFATE
     Indication: BACK PAIN
     Dosage: IN THE MORNING AND IN THE EVENING
  7. PRAZEPAM [Suspect]
     Active Substance: PRAZEPAM
     Indication: MUSCLE RELAXANT THERAPY
     Dosage: IN THE MORNING, IN MIDDAY, IN THE EVENING
  8. ACTISKENAN [Suspect]
     Active Substance: MORPHINE SULFATE
     Indication: BACK PAIN
     Dosage: ON THE DAY
  9. ACTISKENAN [Suspect]
     Active Substance: MORPHINE SULFATE
     Dosage: 18 DF, QD, 6 DF IN THE MORNING, 6 DF IN MIDDAY, 6 DF IN THE EVENING
  10. ACTISKENAN [Suspect]
     Active Substance: MORPHINE SULFATE
     Indication: BACK PAIN
     Dosage: ON THE DAY
  11. SKENAN [Suspect]
     Active Substance: MORPHINE SULFATE
     Dosage: 60 MG, Q2D, IN THE MORNING AND IN THE EVENING
     Route: 045
  12. CODEINE PHOSPHATE                  /00012605/ [Suspect]
     Active Substance: CODEINE PHOSPHATE
     Indication: PAIN
     Dosage: UP TO 4 TO 6 OCCASIONALLY
  13. STILNOX [Concomitant]
     Active Substance: ZOLPIDEM TARTRATE
     Indication: PAIN
     Dosage: ONE OR 2 DOSAGE FORMS IN CASE OF MAJOR PAIN CRISIS
  14. SKENAN [Suspect]
     Active Substance: MORPHINE SULFATE
     Dosage: 50 MG, QD, AT NIGHT
  15. SKENAN [Suspect]
     Active Substance: MORPHINE SULFATE
     Indication: BACK PAIN
     Dosage: 1 DF, Q2D, IN THE MORNING
  16. LYSANXIA [Suspect]
     Active Substance: PRAZEPAM
     Indication: MUSCLE RELAXANT THERAPY
     Dosage: 3 TO 6 DOSAGE FORMS
  17. SKENAN [Suspect]
     Active Substance: MORPHINE SULFATE
     Dosage: IN THE MORNING AND IN THE EVENING

REACTIONS (8)
  - Feeling abnormal [Unknown]
  - Drug dependence [Unknown]
  - Intentional product use issue [Unknown]
  - Drug diversion [Unknown]
  - Withdrawal syndrome [Unknown]
  - Drug abuse [Unknown]
  - Drug tolerance [Unknown]
  - Fatigue [Unknown]
